FAERS Safety Report 10415231 (Version 1)
Quarter: 2014Q2

REPORT INFORMATION
  Report Type: Spontaneous
  Country: US (occurrence: None)
  Receive Date: 20140604
  Receipt Date: 20140604
  Transmission Date: 20141212
  Serious: No
  Sender: FDA-Public Use
  Company Number: 163-POMAL-14023711

PATIENT
  Age: 66 Year
  Sex: Male
  Weight: 76.3 kg

DRUGS (3)
  1. POMALYST (POMALIDOMIDE) (4 MILLIGRAM, CAPSULES) [Suspect]
     Indication: PLASMA CELL MYELOMA
     Route: 048
     Dates: start: 20140114, end: 201402
  2. LUPRON (LEUPRORELIN ACETATE) [Concomitant]
  3. OMEPRAZOLE [Concomitant]

REACTIONS (5)
  - Somnolence [None]
  - Pruritus [None]
  - Nausea [None]
  - Dyspnoea [None]
  - Dizziness [None]
